FAERS Safety Report 8925418 (Version 1)
Quarter: 2012Q4

REPORT INFORMATION
  Report Type: 
  Country: US (occurrence: US)
  Receive Date: 20121126
  Receipt Date: 20121126
  Transmission Date: 20130627
  Serious: No
  Sender: FDA-Public Use
  Company Number: US-PFIZER INC-2012293883

PATIENT
  Age: 77 Year
  Sex: Female

DRUGS (1)
  1. AMIODARONE HCL [Suspect]
     Indication: ARRHYTHMIA
     Dosage: UNK

REACTIONS (1)
  - Drug intolerance [Unknown]
